FAERS Safety Report 23325827 (Version 1)
Quarter: 2023Q4

REPORT INFORMATION
  Report Type: Spontaneous
  Country: MY (occurrence: MY)
  Receive Date: 20231221
  Receipt Date: 20231221
  Transmission Date: 20240110
  Serious: Yes (Life-Threatening)
  Sender: FDA-Public Use
  Company Number: MY-MYLANLABS-2023M1134859

PATIENT
  Age: 84 Year
  Sex: Male

DRUGS (1)
  1. AZITHROMYCIN ANHYDROUS [Suspect]
     Active Substance: AZITHROMYCIN ANHYDROUS
     Indication: Pneumonia
     Dosage: 500 MILLIGRAM, QD
     Route: 042

REACTIONS (1)
  - Anaphylactic shock [Recovered/Resolved]
